FAERS Safety Report 26145583 (Version 1)
Quarter: 2025Q4

REPORT INFORMATION
  Report Type: Spontaneous
  Country: US (occurrence: US)
  Receive Date: 20251211
  Receipt Date: 20251211
  Transmission Date: 20260118
  Serious: Yes (Hospitalization, Other)
  Sender: Kenvue
  Company Number: US-KENVUE-20251201981

PATIENT
  Age: 60 Year
  Sex: Female

DRUGS (3)
  1. TYLENOL [Suspect]
     Active Substance: ACETAMINOPHEN
     Indication: Headache
     Route: 065
  2. VICKS NYQUIL [Suspect]
     Active Substance: ACETAMINOPHEN\DEXTROMETHORPHAN HYDROBROMIDE\DOXYLAMINE SUCCINATE
     Indication: Headache
     Route: 065
  3. VICKS DAYQUIL [Suspect]
     Active Substance: DEXTROMETHORPHAN HYDROBROMIDE\GUAIFENESIN
     Indication: Headache
     Route: 065

REACTIONS (11)
  - Metabolic acidosis [Unknown]
  - Confusional state [Unknown]
  - Ammonia increased [Unknown]
  - Mental status changes [Recovered/Resolved]
  - Hypotension [Unknown]
  - Blood glucose increased [Recovering/Resolving]
  - Liver injury [Recovering/Resolving]
  - Platelet count decreased [Unknown]
  - Prothrombin time prolonged [Unknown]
  - International normalised ratio increased [Unknown]
  - Accidental overdose [Unknown]
